FAERS Safety Report 20678650 (Version 1)
Quarter: 2022Q2

REPORT INFORMATION
  Report Type: Spontaneous
  Country: US (occurrence: None)
  Receive Date: 20220404
  Receipt Date: 20220404
  Transmission Date: 20220721
  Serious: No
  Sender: FDA-Public Use
  Company Number: None

PATIENT
  Sex: Female

DRUGS (1)
  1. HUMIRA [Suspect]
     Active Substance: ADALIMUMAB
     Indication: Colitis ulcerative
     Dosage: 40MG EVERY 14 DAYS UNDER THE SKIN?
     Route: 058
     Dates: start: 20220316

REACTIONS (4)
  - Rash erythematous [None]
  - Psoriasis [None]
  - Rash [None]
  - Rash [None]
